FAERS Safety Report 5080021-9 (Version None)
Quarter: 2006Q3

REPORT INFORMATION
  Report Type: 
  Country: None (occurrence: None)
  Receive Date: 20060810
  Receipt Date: 20060804
  Transmission Date: 20061208
  Serious: Yes (Hospitalization)
  Sender: FDA-Public Use
  Company Number: 2006095274

PATIENT
  Age: 83 Year
  Sex: Female

DRUGS (6)
  1. LIPITOR [Suspect]
     Indication: DRUG USE FOR UNKNOWN INDICATION
  2. MEVACOR [Concomitant]
  3. ZETIA [Concomitant]
  4. ZOCOR [Concomitant]
  5. PRAVACHOL [Concomitant]
  6. PLAVIX [Concomitant]

REACTIONS (2)
  - HAEMORRHAGE [None]
  - MUSCLE SPASMS [None]
